FAERS Safety Report 6179827-4 (Version None)
Quarter: 2009Q2

REPORT INFORMATION
  Report Type: 
  Country: None (occurrence: None)
  Receive Date: 20090505
  Receipt Date: 20090429
  Transmission Date: 20091009
  Serious: Yes (Hospitalization)
  Sender: FDA-Public Use
  Company Number: GB-PFIZER INC-2009205156

PATIENT

DRUGS (4)
  1. FESOTERODINE [Suspect]
     Indication: POLLAKIURIA
     Dosage: 4 MG, 1X/DAY
     Route: 048
     Dates: start: 20090330
  2. AMITRIPTYLINE [Concomitant]
     Dosage: 25 MG, 1X/DAY
  3. CORACTEN [Concomitant]
     Dosage: 60 MG, 1X/DAY
  4. METOPROLOL [Concomitant]
     Dosage: 50 MG, 2X/DAY

REACTIONS (3)
  - DIZZINESS [None]
  - PALPITATIONS [None]
  - SUPRAVENTRICULAR TACHYCARDIA [None]
